FAERS Safety Report 4528144-4 (Version None)
Quarter: 2004Q4

REPORT INFORMATION
  Report Type: 
  Country: None (occurrence: None)
  Receive Date: 20041215
  Receipt Date: 20041213
  Transmission Date: 20050328
  Serious: Yes (Hospitalization)
  Sender: FDA-Public Use
  Company Number: US-MERCK-0412USA01548

PATIENT
  Age: 71 Year
  Sex: Male

DRUGS (5)
  1. PROSCAR [Suspect]
     Indication: BENIGN PROSTATIC HYPERPLASIA
     Route: 048
     Dates: end: 20040101
  2. LIPITOR [Concomitant]
     Route: 065
  3. TRICOR [Concomitant]
     Route: 065
  4. ZOLOFT [Concomitant]
     Route: 065
  5. MAVIK [Concomitant]
     Route: 065

REACTIONS (2)
  - ANGINA PECTORIS [None]
  - HEADACHE [None]
